FAERS Safety Report 8680041 (Version 3)
Quarter: 2013Q4

REPORT INFORMATION
  Report Type: Spontaneous
  Country: US (occurrence: US)
  Receive Date: 20120724
  Receipt Date: 20131101
  Transmission Date: 20140711
  Serious: No
  Sender: FDA-Public Use
  Company Number: US-009507513-1207USA007944

PATIENT
  Age: 55 Year
  Sex: Male
  Weight: 74.38 kg

DRUGS (4)
  1. PEGINTRON [Suspect]
     Indication: CHRONIC HEPATITIS C
     Dosage: 120 MICROGRAM, QW
     Route: 058
     Dates: start: 20120524, end: 20120622
  2. PEGINTRON [Suspect]
     Dosage: 72 MICROGRAM, QW
     Route: 058
     Dates: start: 20120803
  3. REBETOL [Suspect]
     Indication: HEPATITIS C
     Dosage: 1000 MG, QD
     Route: 048
     Dates: start: 20120524, end: 20120622
  4. LISINOPRIL [Concomitant]

REACTIONS (2)
  - Thrombocytopenia [Recovered/Resolved]
  - Leukopenia [Recovering/Resolving]
